FAERS Safety Report 25791831 (Version 1)
Quarter: 2025Q3

REPORT INFORMATION
  Report Type: Spontaneous
  Country: US (occurrence: US)
  Receive Date: 20250911
  Receipt Date: 20250911
  Transmission Date: 20251021
  Serious: Yes (Life-Threatening, Other)
  Sender: PFIZER
  Company Number: US-PFIZER INC-202500179461

PATIENT
  Age: 55 Year
  Sex: Female

DRUGS (1)
  1. DOBUTAMINE HYDROCHLORIDE [Suspect]
     Active Substance: DOBUTAMINE HYDROCHLORIDE
     Indication: Myocardial infarction

REACTIONS (2)
  - Cardiogenic shock [Unknown]
  - Off label use [Unknown]
